FAERS Safety Report 5678422-0 (Version None)
Quarter: 2008Q1

REPORT INFORMATION
  Report Type: 
  Country: None (occurrence: None)
  Receive Date: 20080321
  Receipt Date: 20080313
  Transmission Date: 20080703
  Serious: Yes (Hospitalization)
  Sender: FDA-Public Use
  Company Number: 2008S1000076

PATIENT
  Age: 66 Year
  Sex: Female
  Weight: 79.3795 kg

DRUGS (8)
  1. OLUX E [Suspect]
     Indication: GRANULOMA
     Dosage: 0.05 PCT; BID; TOP
     Route: 061
     Dates: start: 20080309, end: 20080311
  2. ATENOLOL [Concomitant]
  3. VERAPAMIL [Concomitant]
  4. DICYCLOMINE /00068601/ [Concomitant]
  5. NEXIUM [Concomitant]
  6. CELEBREX [Concomitant]
  7. VIACTIV /01483701/ [Concomitant]
  8. ASPIRIN [Concomitant]

REACTIONS (2)
  - CHEST DISCOMFORT [None]
  - DIZZINESS [None]
